FAERS Safety Report 5726577-1 (Version None)
Quarter: 2008Q2

REPORT INFORMATION
  Report Type: 
  Country: None (occurrence: None)
  Receive Date: 20080502
  Receipt Date: 20080422
  Transmission Date: 20081010
  Serious: Yes (Death)
  Sender: FDA-Public Use
  Company Number: BA-ROCHE-492358

PATIENT
  Sex: Female
  Weight: 94 kg

DRUGS (2)
  1. CAPECITABINE [Suspect]
     Dosage: FREQUENCY REPORTED AS 2. GIVEN ON DAYS 1-14 EVERY 3 WEEK CYCLE AS PER PROTOCOL.
     Route: 048
     Dates: start: 20070209
  2. DOCETAXEL [Suspect]
     Dosage: FREQUENCY REPORTED AS 1
     Route: 042
     Dates: start: 20070209

REACTIONS (1)
  - DEATH [None]
